FAERS Safety Report 5924171-0 (Version None)
Quarter: 2008Q4

REPORT INFORMATION
  Report Type: 
  Country: None (occurrence: None)
  Receive Date: 20081015
  Receipt Date: 20081010
  Transmission Date: 20090506
  Serious: Yes (Congenital Anomaly, Other)
  Sender: FDA-Public Use
  Company Number: 2008SP017913

PATIENT
  Sex: Female

DRUGS (2)
  1. VIRAFERONPEG [Suspect]
     Indication: HEPATITIS C
     Dates: start: 20000915, end: 20010915
  2. REBETOL [Suspect]
     Indication: HEPATITIS C
     Dates: start: 20000915, end: 20010915

REACTIONS (4)
  - CEREBELLAR HYPOPLASIA [None]
  - GROWTH RETARDATION [None]
  - NEONATAL DISORDER [None]
  - PATERNAL DRUGS AFFECTING FOETUS [None]
